FAERS Safety Report 8546899-9 (Version None)
Quarter: 2012Q3

REPORT INFORMATION
  Report Type: 
  Country: None (occurrence: None)
  Receive Date: 20120727
  Receipt Date: 20120117
  Transmission Date: 20120928
  Serious: No
  Sender: FDA-Public Use
  Company Number: US-ASTRAZENECA-2012SE03513

PATIENT
  Age: 52 Year
  Sex: Female
  Weight: 90.7 kg

DRUGS (8)
  1. SEROQUEL XR [Suspect]
     Route: 048
  2. SEROQUEL XR [Suspect]
     Indication: POST-TRAUMATIC STRESS DISORDER
     Route: 048
  3. SEROQUEL XR [Suspect]
     Indication: ANXIETY
     Route: 048
  4. SEROQUEL XR [Suspect]
     Route: 048
  5. SEROQUEL XR [Suspect]
     Indication: MAJOR DEPRESSION
     Route: 048
  6. ZOLOFT [Concomitant]
  7. SEROQUEL XR [Suspect]
     Route: 048
  8. ATAVAND [Concomitant]

REACTIONS (4)
  - MUSCULOSKELETAL STIFFNESS [None]
  - OFF LABEL USE [None]
  - HYPERHIDROSIS [None]
  - PSORIASIS [None]
